FAERS Safety Report 17210347 (Version 2)
Quarter: 2020Q1

REPORT INFORMATION
  Report Type: Spontaneous
  Country: US (occurrence: US)
  Receive Date: 20191227
  Receipt Date: 20200225
  Transmission Date: 20200409
  Serious: Yes (Death)
  Sender: FDA-Public Use
  Company Number: US-PORTOLA PHARMACEUTICALS, INC.-2019US000166

PATIENT

DRUGS (40)
  1. METOCLOPRAMIDE. [Concomitant]
     Active Substance: METOCLOPRAMIDE
  2. SERTRALINE [Concomitant]
     Active Substance: SERTRALINE HYDROCHLORIDE
  3. POTASSIUM CHLORIDE. [Concomitant]
     Active Substance: POTASSIUM CHLORIDE
     Dosage: UNK
     Route: 048
  4. BISCODYL [Concomitant]
     Active Substance: BISACODYL
  5. LEVETIRACETAM. [Concomitant]
     Active Substance: LEVETIRACETAM
  6. OXYCODONE [Concomitant]
     Active Substance: OXYCODONE
  7. MELATONIN [Concomitant]
     Active Substance: MELATONIN
  8. SURGIFLO [Concomitant]
     Active Substance: GELATIN
  9. TAMSULOSIN [Concomitant]
     Active Substance: TAMSULOSIN
  10. GABAPENTIN. [Concomitant]
     Active Substance: GABAPENTIN
  11. INSULIN ASPART [Concomitant]
     Active Substance: INSULIN ASPART
  12. PEG                                /01543001/ [Concomitant]
     Active Substance: PEGINTERFERON ALFA-2B
  13. ANDEXXA [Suspect]
     Active Substance: ANDEXANET ALFA
     Dosage: UNK
  14. HYDROMORPHONE [Concomitant]
     Active Substance: HYDROMORPHONE
  15. FENTANYL. [Concomitant]
     Active Substance: FENTANYL
  16. PHENYLEPHRINE [Concomitant]
     Active Substance: PHENYLEPHRINE HYDROCHLORIDE
  17. FUROSEMIDE. [Concomitant]
     Active Substance: FUROSEMIDE
  18. POTASSIUM CHLORIDE. [Concomitant]
     Active Substance: POTASSIUM CHLORIDE
     Dosage: UNK
     Route: 042
  19. BARIUM SULFATE [Concomitant]
     Active Substance: BARIUM SULFATE
  20. MUCOMYST [Concomitant]
     Active Substance: ACETYLCYSTEINE
  21. ANDEXXA [Suspect]
     Active Substance: ANDEXANET ALFA
     Dosage: 480 MG, SINGLE
     Route: 041
     Dates: start: 20180829, end: 20180829
  22. LIDOCAINE AND EPINEPHRINE [Concomitant]
     Active Substance: EPINEPHRINE\LIDOCAINE HYDROCHLORIDE
     Dosage: 1:100,000
  23. ACETAMINOPHEN. [Concomitant]
     Active Substance: ACETAMINOPHEN
  24. MAGNESIUM [Concomitant]
     Active Substance: MAGNESIUM
     Route: 042
  25. LIDOCAINE                          /00033402/ [Concomitant]
     Active Substance: LIDOCAINE
     Dosage: LIDOCAINE PATCH
  26. ENOXAPARIN [Concomitant]
     Active Substance: ENOXAPARIN
     Indication: THROMBOSIS PROPHYLAXIS
  27. ANDEXXA [Suspect]
     Active Substance: ANDEXANET ALFA
     Indication: PROCOAGULANT THERAPY
     Dosage: 400 MG, SINGLE
     Route: 040
     Dates: start: 20180829, end: 20180829
  28. SALINE                             /00075401/ [Concomitant]
     Active Substance: SODIUM CHLORIDE
     Dosage: NORMAL SALINE INFUSION
  29. DIGOXIN. [Concomitant]
     Active Substance: DIGOXIN
  30. TIZANIDINE. [Concomitant]
     Active Substance: TIZANIDINE
  31. DUONEB [Concomitant]
     Active Substance: ALBUTEROL SULFATE\IPRATROPIUM BROMIDE
  32. OMNIPAQUE [Concomitant]
     Active Substance: IOHEXOL
  33. BACITRACIN. [Concomitant]
     Active Substance: BACITRACIN
     Dosage: BACITRACIN IN NORMAL SALINE
  34. THROMBIN [Concomitant]
     Active Substance: THROMBIN
     Dosage: TOPICAL THROMBIN
     Route: 061
  35. REGULAR INSULIN NOVO NORDISK [Concomitant]
     Active Substance: INSULIN HUMAN
  36. MAGNESIUM [Concomitant]
     Active Substance: MAGNESIUM
     Dosage: UNK
     Route: 048
  37. RIVAROXABAN [Concomitant]
     Active Substance: RIVAROXABAN
     Indication: ATRIAL FIBRILLATION
     Dosage: 20 MG, QD
     Route: 048
  38. HEPARIN [Concomitant]
     Active Substance: HEPARIN SODIUM
     Indication: THROMBOSIS PROPHYLAXIS
  39. CALCIUM GLUCONATE. [Concomitant]
     Active Substance: CALCIUM GLUCONATE
  40. METFORMIN [Concomitant]
     Active Substance: METFORMIN HYDROCHLORIDE

REACTIONS (1)
  - Pneumonia [Fatal]

NARRATIVE: CASE EVENT DATE: 20180907
